FAERS Safety Report 13583142 (Version 3)
Quarter: 2017Q2

REPORT INFORMATION
  Report Type: Spontaneous
  Country: US (occurrence: US)
  Receive Date: 20170525
  Receipt Date: 20170621
  Transmission Date: 20170830
  Serious: Yes (Other)
  Sender: FDA-Public Use
  Company Number: US-JAZZ-2017-US-005558

PATIENT
  Sex: Female

DRUGS (40)
  1. COMPAZINE                          /00013302/ [Concomitant]
     Active Substance: PROCHLORPERAZINE EDISYLATE
  2. TORADOL [Concomitant]
     Active Substance: KETOROLAC TROMETHAMINE
  3. FOLIC ACID. [Concomitant]
     Active Substance: FOLIC ACID
  4. SPIRONOLACTONE. [Concomitant]
     Active Substance: SPIRONOLACTONE
  5. DEMEROL [Concomitant]
     Active Substance: MEPERIDINE HYDROCHLORIDE
  6. PHENERGAN [Concomitant]
     Active Substance: PROMETHAZINE HYDROCHLORIDE
  7. CALCIUM CITRATE +D [Concomitant]
     Active Substance: CALCIUM CITRATE\VITAMIN D
  8. MAGNESIUM [Concomitant]
     Active Substance: MAGNESIUM
  9. VITAMIN K [Concomitant]
     Active Substance: PHYTONADIONE
  10. ZINC GLUCONATE [Concomitant]
     Active Substance: ZINC GLUCONATE
  11. ZINC ACETATE [Concomitant]
     Active Substance: ZINC ACETATE
  12. ATIVAN [Concomitant]
     Active Substance: LORAZEPAM
  13. BENADRYL [Concomitant]
     Active Substance: DIPHENHYDRAMINE HYDROCHLORIDE
  14. CHROMIUM PICOLINAT [Concomitant]
  15. NATURE-THROID [Concomitant]
     Active Substance: THYROID, PORCINE
  16. SELENIUM [Concomitant]
     Active Substance: SELENIUM
  17. MELATONIN [Concomitant]
     Active Substance: MELATONIN
  18. KLONOPIN [Concomitant]
     Active Substance: CLONAZEPAM
  19. WESTHROID [Concomitant]
     Active Substance: THYROGLOBULIN
  20. CALAN [Concomitant]
     Active Substance: VERAPAMIL HYDROCHLORIDE
  21. PROMETHAZINE [Concomitant]
     Active Substance: PROMETHAZINE\PROMETHAZINE HYDROCHLORIDE
  22. MINIVELLE [Concomitant]
     Active Substance: ESTRADIOL
  23. XYREM [Suspect]
     Active Substance: SODIUM OXYBATE
     Dosage: 4.5G, BID
     Route: 048
     Dates: start: 201209
  24. PROPRANOLOL [Concomitant]
     Active Substance: PROPRANOLOL HYDROCHLORIDE
  25. ALBUTEROL SULFATE. [Concomitant]
     Active Substance: ALBUTEROL SULFATE
  26. IODINE. [Concomitant]
     Active Substance: IODINE
  27. CALCARB [Concomitant]
  28. ARTHROTEC [Concomitant]
     Active Substance: DICLOFENAC SODIUM\MISOPROSTOL
  29. CAMBIA [Concomitant]
     Active Substance: DICLOFENAC POTASSIUM
  30. METHOCARBAMOL. [Concomitant]
     Active Substance: METHOCARBAMOL
  31. MAGNESIUM CITRATE. [Concomitant]
     Active Substance: MAGNESIUM CITRATE
  32. XYREM [Suspect]
     Active Substance: SODIUM OXYBATE
     Indication: NARCOLEPSY
     Dosage: 2.25G, BID
     Route: 048
     Dates: start: 201203, end: 201204
  33. PERCOCET                           /00446701/ [Concomitant]
     Active Substance: ACETAMINOPHEN\OXYCODONE HYDROCHLORIDE\OXYCODONE TEREPHTHALATE
  34. TRAMADOL HCL [Concomitant]
     Active Substance: TRAMADOL HYDROCHLORIDE
  35. TRAZODONE [Concomitant]
     Active Substance: TRAZODONE HYDROCHLORIDE
  36. VITAMIN C [Concomitant]
     Active Substance: ASCORBIC ACID
  37. XYREM [Suspect]
     Active Substance: SODIUM OXYBATE
     Dosage: 3G, BID
     Route: 048
     Dates: start: 201204, end: 201209
  38. VITAMIN D3 [Concomitant]
     Active Substance: CHOLECALCIFEROL
  39. XANAX [Concomitant]
     Active Substance: ALPRAZOLAM
  40. VERAPAMIL [Concomitant]
     Active Substance: VERAPAMIL HYDROCHLORIDE

REACTIONS (5)
  - Spinal disorder [Not Recovered/Not Resolved]
  - Muscle spasms [Not Recovered/Not Resolved]
  - Hepatic steatosis [Not Recovered/Not Resolved]
  - Gastritis [Not Recovered/Not Resolved]
  - Therapeutic procedure [Unknown]
